FAERS Safety Report 8818314 (Version 2)
Quarter: 2012Q4

REPORT INFORMATION
  Report Type: Report from Study
  Country: DE (occurrence: DE)
  Receive Date: 20121001
  Receipt Date: 20121010
  Transmission Date: 20130627
  Serious: Yes (Death, Hospitalization)
  Sender: FDA-Public Use
  Company Number: DE-CELGENEUS-062-21660-12092452

PATIENT
  Age: 72 Year
  Sex: Female
  Weight: 53 kg

DRUGS (6)
  1. ABRAXANE [Suspect]
     Indication: BREAST CARCINOMA
     Route: 041
     Dates: start: 20120521, end: 20120810
  2. ABRAXANE [Suspect]
     Route: 041
     Dates: end: 20120910
  3. XELODA [Suspect]
     Indication: BREAST CARCINOMA
     Dosage: 2000 Milligram
     Route: 048
     Dates: start: 20120521, end: 20120812
  4. XELODA [Suspect]
     Dosage: 2000 Milligram
     Route: 048
     Dates: end: 20120820
  5. ALENDRONIC ACID [Concomitant]
     Indication: DRUG USE FOR UNKNOWN INDICATION
     Dosage: 70 Milligram
     Route: 065
  6. RAMIPRIL [Concomitant]
     Indication: DRUG USE FOR UNKNOWN INDICATION
     Route: 065

REACTIONS (1)
  - Cardiac failure [Fatal]
